FAERS Safety Report 18928514 (Version 1)
Quarter: 2021Q1

REPORT INFORMATION
  Report Type: Spontaneous
  Country: US (occurrence: US)
  Receive Date: 20210223
  Receipt Date: 20210223
  Transmission Date: 20210420
  Serious: No
  Sender: FDA-Public Use
  Company Number: None

PATIENT
  Age: 71 Year
  Sex: Female
  Weight: 69.3 kg

DRUGS (7)
  1. COLCHICINE. [Concomitant]
     Active Substance: COLCHICINE
  2. ZOLOFT [Concomitant]
     Active Substance: SERTRALINE HYDROCHLORIDE
  3. CALCIUM [Concomitant]
     Active Substance: CALCIUM
  4. VIT. D [Concomitant]
     Active Substance: VITAMIN D NOS
  5. ARTNATURALS HAND SANITIZER NATURAL ELEMENTS CLEANSING FORMULA [Suspect]
     Active Substance: ALCOHOL
     Indication: ANTIBIOTIC PROPHYLAXIS
     Dates: start: 20210222, end: 20210222
  6. CRESTOR [Concomitant]
     Active Substance: ROSUVASTATIN CALCIUM
  7. ADULT VITAMIN SUPPLEMENT [Concomitant]

REACTIONS (6)
  - Product complaint [None]
  - Chest pain [None]
  - Product odour abnormal [None]
  - Eye irritation [None]
  - Accidental exposure to product [None]
  - Product contamination [None]

NARRATIVE: CASE EVENT DATE: 20210222
